FAERS Safety Report 22598839 (Version 3)
Quarter: 2024Q2

REPORT INFORMATION
  Report Type: Spontaneous
  Country: RO (occurrence: RO)
  Receive Date: 20230614
  Receipt Date: 20240612
  Transmission Date: 20240716
  Serious: Yes (Death, Hospitalization, Other)
  Sender: FDA-Public Use
  Company Number: RO-AMGEN-ROUSP2023097789

PATIENT
  Age: 65 Year
  Sex: Male
  Weight: 100 kg

DRUGS (10)
  1. BEVACIZUMAB [Suspect]
     Active Substance: BEVACIZUMAB
     Indication: Hepatocellular carcinoma
     Dosage: 1400 MILLIGRAM
     Route: 065
     Dates: start: 20221228
  2. ATEZOLIZUMAB [Suspect]
     Active Substance: ATEZOLIZUMAB
     Indication: Hepatocellular carcinoma
     Dosage: ON 18/JAN/2023, MOST RECENT DOSE OF 1200 MG OF ATEZOLIZUMAB WAS ADMINISTERED PRIOR TO EVENT MESENTER
     Route: 040
     Dates: start: 20221228
  3. Diurex [Concomitant]
     Dosage: UNK, BID
     Route: 065
  4. Diurex [Concomitant]
     Dosage: UNK, QD
     Route: 065
  5. PROPRANOLOL [Concomitant]
     Active Substance: PROPRANOLOL HYDROCHLORIDE
     Dosage: UNK, BID
     Route: 065
  6. CONTROLOC [Concomitant]
     Active Substance: PANTOPRAZOLE SODIUM
     Dosage: UNK
     Route: 065
  7. URSODIOL [Concomitant]
     Active Substance: URSODIOL
     Dosage: UNK
     Route: 065
  8. RIFAXIMIN [Concomitant]
     Active Substance: RIFAXIMIN
     Dosage: UNK
     Route: 065
  9. GLICLAZIDE [Concomitant]
     Active Substance: GLICLAZIDE
     Dosage: UNK UNK, QD
     Route: 065
  10. ESSENTIALE FORTE [Concomitant]
     Dosage: UNK UNK, QD
     Route: 065

REACTIONS (6)
  - Intestinal ischaemia [Fatal]
  - Neutropenia [Recovered/Resolved]
  - Leukopenia [Recovered/Resolved]
  - Thrombocytopenia [Not Recovered/Not Resolved]
  - Anaemia [Recovered/Resolved]
  - Off label use [Unknown]

NARRATIVE: CASE EVENT DATE: 20230117
